FAERS Safety Report 6130504-5 (Version None)
Quarter: 2009Q1

REPORT INFORMATION
  Report Type: 
  Country: None (occurrence: None)
  Receive Date: 20090323
  Receipt Date: 20090312
  Transmission Date: 20090719
  Serious: Yes (Life-Threatening)
  Sender: FDA-Public Use
  Company Number: 216540

PATIENT
  Age: 28 Year
  Sex: Male

DRUGS (4)
  1. PROPOFOL [Suspect]
     Indication: INTRACRANIAL PRESSURE INCREASED
     Dosage: 50-75 MCG/KG/MIN; 95-125 MCG/KG/MIN
  2. PROPOFOL [Suspect]
     Indication: SEDATIVE THERAPY
     Dosage: 50-75 MCG/KG/MIN; 95-125 MCG/KG/MIN
  3. DOBUTAMINE HCL [Suspect]
     Indication: VASOPRESSIVE THERAPY
     Dosage: 4-10 MCG/KG/MIN
  4. PHENYLEPHRINE HCL INJ USP 1% (PHENYLEPHRINE) [Suspect]
     Indication: VASOPRESSIVE THERAPY
     Dosage: 0.8-8 MCG/KG/MIN

REACTIONS (1)
  - PROPOFOL INFUSION SYNDROME [None]
